FAERS Safety Report 16877635 (Version 3)
Quarter: 2019Q4

REPORT INFORMATION
  Report Type: Spontaneous
  Country: US (occurrence: US)
  Receive Date: 20191002
  Receipt Date: 20191108
  Transmission Date: 20200122
  Serious: No
  Sender: FDA-Public Use
  Company Number: US-PFIZER INC-2019425835

PATIENT
  Age: 56 Year
  Sex: Female
  Weight: 61.22 kg

DRUGS (4)
  1. TIZANIDINE. [Concomitant]
     Active Substance: TIZANIDINE
     Dosage: UNK
  2. HYDROCODONE [Concomitant]
     Active Substance: HYDROCODONE
     Indication: PAIN
     Dosage: UNK, 4X/DAY
     Dates: start: 201205
  3. PREGABALIN. [Suspect]
     Active Substance: PREGABALIN
     Indication: CHEST PAIN
  4. PREGABALIN. [Suspect]
     Active Substance: PREGABALIN
     Indication: PAIN
     Dosage: 75 MG, 3X/DAY

REACTIONS (1)
  - Drug ineffective [Unknown]
